FAERS Safety Report 5025435-8 (Version None)
Quarter: 2006Q2

REPORT INFORMATION
  Report Type: 
  Country: None (occurrence: None)
  Receive Date: 20060608
  Receipt Date: 20060530
  Transmission Date: 20061013
  Serious: Yes (Death, Other)
  Sender: FDA-Public Use
  Company Number: 2006-05-2502

PATIENT
  Age: 66 Year
  Sex: Female

DRUGS (2)
  1. TEMOZOLOMIDE CAPSULES [Suspect]
     Indication: OLIGODENDROGLIOMA
     Dosage: SEE IMAGE
     Route: 048
     Dates: start: 20010301, end: 20040201
  2. CARMUSTINE IMPLANT FOR OLIGODENDROGLIOMA [Concomitant]

REACTIONS (7)
  - ACUTE MYELOID LEUKAEMIA [None]
  - BONE MARROW FAILURE [None]
  - CHROMOSOMAL DELETION [None]
  - MEAN CELL VOLUME INCREASED [None]
  - MYELODYSPLASTIC SYNDROME [None]
  - PANCYTOPENIA [None]
  - REFRACTORY ANAEMIA [None]
